FAERS Safety Report 5013206-8 (Version None)
Quarter: 2006Q2

REPORT INFORMATION
  Report Type: 
  Country: None (occurrence: None)
  Receive Date: 20060530
  Receipt Date: 20060321
  Transmission Date: 20061013
  Serious: No
  Sender: FDA-Public Use
  Company Number: US-GLAXOSMITHKLINE-A0598393A

PATIENT
  Age: 47 Year
  Sex: Female

DRUGS (5)
  1. WELLBUTRIN XL [Suspect]
     Indication: DEPRESSION
     Dosage: 150MG PER DAY
     Route: 048
     Dates: start: 20060301
  2. PROZAC [Concomitant]
  3. SYNTHROID [Concomitant]
  4. DIAVAN [Concomitant]
  5. GLUCOPHAGE [Concomitant]

REACTIONS (4)
  - CERUMEN REMOVAL [None]
  - EAR INFECTION [None]
  - STRESS [None]
  - TINNITUS [None]
